FAERS Safety Report 14313431 (Version 2)
Quarter: 2018Q1

REPORT INFORMATION
  Report Type: Report from Study
  Country: JP (occurrence: JP)
  Receive Date: 20171221
  Receipt Date: 20180122
  Transmission Date: 20180509
  Serious: Yes (Hospitalization)
  Sender: FDA-Public Use
  Company Number: JP-ASTELLAS-2017JP012263

PATIENT
  Age: 73 Year
  Sex: Male

DRUGS (25)
  1. OMNIPAQUE [Concomitant]
     Active Substance: IOHEXOL
     Dosage: UNK UNK, UNKNOWN FREQ.
     Route: 042
     Dates: start: 20171031, end: 20171031
  2. BEZAFIBRATE [Concomitant]
     Active Substance: BEZAFIBRATE
     Indication: HYPERLIPIDAEMIA
     Route: 048
     Dates: start: 20101126
  3. SUMILU [Concomitant]
     Active Substance: FELBINAC
     Indication: BACK PAIN
     Dosage: ADEQUATE DOSE, AS NEEDED
     Route: 061
     Dates: start: 20170221
  4. CEFTAZIDIME PENTAHYDRATE [Concomitant]
     Active Substance: CEFTAZIDIME
     Indication: INFECTION
     Route: 041
     Dates: start: 20170707, end: 20170709
  5. SELBEX [Concomitant]
     Active Substance: TEPRENONE
     Indication: GASTRITIS
     Route: 048
     Dates: start: 20170719, end: 20170816
  6. GASTER [Concomitant]
     Active Substance: FAMOTIDINE
     Indication: GASTRITIS
     Route: 048
     Dates: start: 20170719, end: 20170816
  7. IOPROMIDE [Concomitant]
     Active Substance: IOPROMIDE
     Indication: SCAN WITH CONTRAST
     Dosage: UNK UNK, UNKNOWN FREQ.
     Route: 042
     Dates: start: 20170803, end: 20170803
  8. PHYSIO 140 [Concomitant]
     Active Substance: CALCIUM GLUCONATE\DEXTROSE\MAGNESIUM CHLORIDE\POTASSIUM CHLORIDE\SODIUM ACETATE\SODIUM CHLORIDE\TRISODIUM CITRATE DIHYDRATE
     Route: 065
     Dates: start: 20170710, end: 20170710
  9. ENZALUTAMIDE [Suspect]
     Active Substance: ENZALUTAMIDE
     Indication: HORMONE-REFRACTORY PROSTATE CANCER
     Route: 048
     Dates: start: 20170517, end: 20171205
  10. TECHNE MDP [Concomitant]
     Indication: BONE SCAN
     Dosage: UNK UNK, UNKNOWN FREQ.
     Route: 042
     Dates: start: 20170501, end: 20170501
  11. OMNIPAQUE [Concomitant]
     Active Substance: IOHEXOL
     Indication: SCAN WITH CONTRAST
     Dosage: UNK UNK, UNKNOWN FREQ.
     Route: 042
     Dates: start: 20170502, end: 20170502
  12. RANMARK [Concomitant]
     Active Substance: DENOSUMAB
     Indication: METASTASES TO BONE
     Route: 058
     Dates: start: 20160901
  13. XTANDI [Suspect]
     Active Substance: ENZALUTAMIDE
     Indication: HORMONE-REFRACTORY PROSTATE CANCER
     Route: 048
     Dates: start: 20171206
  14. MOHRUS L [Concomitant]
     Active Substance: KETOPROFEN
     Indication: BACK PAIN
     Route: 062
     Dates: start: 20170221
  15. LOXOPROFEN                         /00890702/ [Concomitant]
     Active Substance: LOXOPROFEN
     Indication: PYREXIA
     Route: 048
     Dates: start: 20170707, end: 20170707
  16. PHYSIO 140 [Concomitant]
     Active Substance: CALCIUM GLUCONATE\DEXTROSE\MAGNESIUM CHLORIDE\POTASSIUM CHLORIDE\SODIUM ACETATE\SODIUM CHLORIDE\TRISODIUM CITRATE DIHYDRATE
     Indication: PRODUCT USED FOR UNKNOWN INDICATION
     Route: 065
     Dates: start: 20170707, end: 20170709
  17. ZOLADEX [Concomitant]
     Active Substance: GOSERELIN ACETATE
     Indication: HORMONE-REFRACTORY PROSTATE CANCER
     Dosage: 3.6 MG, EVERY 4 WEEKS
     Route: 058
     Dates: start: 20160804
  18. TECHNE MDP [Concomitant]
     Dosage: UNK UNK, UNKNOWN FREQ.
     Route: 042
     Dates: start: 20170804, end: 20170804
  19. CEFTAZIDIME PENTAHYDRATE [Concomitant]
     Active Substance: CEFTAZIDIME
     Route: 041
     Dates: start: 20170710, end: 20170710
  20. PANSPORIN T [Concomitant]
     Indication: INFECTION PROPHYLAXIS
     Dosage: UNK UNK, UNKNOWN FREQ.
     Route: 048
     Dates: start: 20170710, end: 20170715
  21. ROPION [Concomitant]
     Active Substance: FLURBIPROFEN AXETIL
     Indication: PYREXIA
     Route: 041
     Dates: start: 20170707, end: 20170707
  22. SOLULACT [Concomitant]
     Indication: PRODUCT USED FOR UNKNOWN INDICATION
     Route: 065
     Dates: start: 20170707, end: 20170707
  23. BLOPRESS [Concomitant]
     Active Substance: CANDESARTAN CILEXETIL
     Indication: HYPERTENSION
     Route: 048
     Dates: start: 20101126, end: 20171006
  24. ADALAT [Concomitant]
     Active Substance: NIFEDIPINE
     Indication: HYPERTENSION
     Route: 048
     Dates: start: 20161126
  25. DENOTAS [Concomitant]
     Active Substance: CALCIUM CARBONATE\CHOLECALCIFEROL\MAGNESIUM CARBONATE
     Indication: HYPOCALCAEMIA
     Route: 048
     Dates: start: 20160901

REACTIONS (7)
  - Pyrexia [Recovered/Resolved]
  - Gastritis [Recovered/Resolved]
  - Hypertension [Not Recovered/Not Resolved]
  - Nausea [Not Recovered/Not Resolved]
  - Abdominal distension [Not Recovered/Not Resolved]
  - Pyrexia [Recovered/Resolved]
  - Disturbance in attention [Recovered/Resolved]

NARRATIVE: CASE EVENT DATE: 20170531
